FAERS Safety Report 24684320 (Version 1)
Quarter: 2024Q4

REPORT INFORMATION
  Report Type: Spontaneous
  Country: GB (occurrence: None)
  Receive Date: 20241202
  Receipt Date: 20241202
  Transmission Date: 20250114
  Serious: Yes (Death, Other)
  Sender: ORION
  Company Number: None

PATIENT
  Age: 57 Year
  Sex: Female
  Weight: 67 kg

DRUGS (2)
  1. METHOTREXATE [Suspect]
     Active Substance: METHOTREXATE
     Indication: Rheumatoid arthritis
     Dates: start: 20240630, end: 20240630
  2. TRAMADOL [Concomitant]
     Active Substance: TRAMADOL
     Indication: Pain management
     Dates: start: 20240623, end: 20240630

REACTIONS (3)
  - Subarachnoid haemorrhage [Fatal]
  - Brain death [Not Recovered/Not Resolved]
  - Loss of consciousness [Unknown]

NARRATIVE: CASE EVENT DATE: 20240101
